FAERS Safety Report 5066321-7 (Version None)
Quarter: 2006Q3

REPORT INFORMATION
  Report Type: 
  Country: None (occurrence: None)
  Receive Date: 20060727
  Receipt Date: 20060717
  Transmission Date: 20061208
  Serious: Yes (Hospitalization)
  Sender: FDA-Public Use
  Company Number: 430013M06USA

PATIENT
  Age: 81 Year
  Sex: Male
  Weight: 72.6 kg

DRUGS (22)
  1. NOVANTRONE [Suspect]
     Indication: ACUTE MYELOID LEUKAEMIA
     Dates: start: 20060116
  2. CEP-701 (INVESTIGATIONAL DRUG) [Suspect]
     Indication: ACUTE MYELOID LEUKAEMIA
     Dosage: SEE IMAGE
     Route: 048
     Dates: start: 20060123, end: 20060125
  3. CEP-701 (INVESTIGATIONAL DRUG) [Suspect]
     Indication: ACUTE MYELOID LEUKAEMIA
     Dosage: SEE IMAGE
     Route: 048
     Dates: start: 20060126, end: 20060131
  4. CEP-701 (INVESTIGATIONAL DRUG) [Suspect]
     Indication: ACUTE MYELOID LEUKAEMIA
     Dosage: SEE IMAGE
     Route: 048
     Dates: start: 20060201, end: 20060206
  5. CEP-701 (INVESTIGATIONAL DRUG) [Suspect]
     Indication: ACUTE MYELOID LEUKAEMIA
     Dosage: SEE IMAGE
     Route: 048
     Dates: start: 20060217
  6. ETOPOSIDE [Suspect]
     Dates: start: 20060116
  7. CYTARABINE [Suspect]
     Dates: start: 20060116
  8. ACYCLOVIR (ACICLOVIR /00587301/) [Concomitant]
  9. PRED FORTE [Concomitant]
  10. ALLOPURINOL [Concomitant]
  11. BIOTENE (GLUCOSE OXIDASE) [Concomitant]
  12. ATIVAN [Concomitant]
  13. LEXAPRO [Concomitant]
  14. AMBIEN [Concomitant]
  15. PROTONIX [Concomitant]
  16. MULTIVITAMIN [Concomitant]
  17. LORAZEPAM [Concomitant]
  18. FUROSEMIDE (FUROSEMIDE /00032601/) [Concomitant]
  19. BENADRYL [Concomitant]
  20. TYLENOL (COTYLENOL) [Concomitant]
  21. MORPHINE (MORPHINE /00036301/) [Concomitant]
  22. SODIUM CHLORIDE 0.9% [Concomitant]

REACTIONS (9)
  - ANOREXIA [None]
  - BACTERAEMIA [None]
  - BLOOD ALKALINE PHOSPHATASE INCREASED [None]
  - BLOOD CULTURE POSITIVE [None]
  - DYSPHAGIA [None]
  - FATIGUE [None]
  - FEBRILE NEUTROPENIA [None]
  - PANCYTOPENIA [None]
  - STOMATITIS [None]
